FAERS Safety Report 8815647 (Version 5)
Quarter: 2014Q4

REPORT INFORMATION
  Report Type: Report from Study
  Country: US (occurrence: US)
  Receive Date: 20120928
  Receipt Date: 20141113
  Transmission Date: 20150529
  Serious: Yes (Hospitalization, Other)
  Sender: FDA-Public Use
  Company Number: US-ACTELION-A-NJ2012-71875

PATIENT
  Age: 66 Year
  Sex: Male

DRUGS (3)
  1. ASPIRIN. [Concomitant]
     Active Substance: ASPIRIN
  2. TRACLEER [Suspect]
     Active Substance: BOSENTAN\BOSENTAN MONOHYDRATE
     Indication: PULMONARY ARTERIAL HYPERTENSION
     Dosage: UNK
     Route: 048
  3. PLAVIX [Concomitant]
     Active Substance: CLOPIDOGREL BISULFATE

REACTIONS (5)
  - Fall [Unknown]
  - Dyspnoea [Unknown]
  - Asthenia [Unknown]
  - Peripheral swelling [Unknown]
  - Coronary arterial stent insertion [Unknown]

NARRATIVE: CASE EVENT DATE: 201209
